FAERS Safety Report 10878824 (Version 1)
Quarter: 2015Q1

REPORT INFORMATION
  Report Type: Spontaneous
  Country: FR (occurrence: FR)
  Receive Date: 20150302
  Receipt Date: 20150302
  Transmission Date: 20150721
  Serious: Yes (Hospitalization, Disabling)
  Sender: FDA-Public Use
  Company Number: FR-IPSEN BIOPHARMACEUTICALS, INC.-2014-6804

PATIENT
  Age: 68 Year
  Sex: Female
  Weight: 45 kg

DRUGS (6)
  1. ABILIFY 5 [Concomitant]
     Indication: DEPRESSION
     Dosage: NOT REPORTED
     Route: 065
  2. LAMICTAL 50 [Concomitant]
     Indication: DEPRESSION
     Dosage: NOT REPORTED
     Route: 065
  3. DEROXAT 20 [Concomitant]
     Indication: DEPRESSION
     Dosage: NOT REPORTED
     Route: 065
  4. DYSPORT 500 UNITES SPEYWOOD [Suspect]
     Active Substance: ABOBOTULINUMTOXINA
     Indication: TORTICOLLIS
     Dosage: 326 UNITS
     Route: 030
     Dates: start: 20140911, end: 20140911
  5. LOSARTAN [Concomitant]
     Active Substance: LOSARTAN
     Indication: HYPERTENSION
     Dosage: NOT REPORTED
     Route: 065
  6. VALIUM 10 [Concomitant]
     Indication: ANXIETY
     Dosage: NOT REPORTED
     Route: 065

REACTIONS (2)
  - Dysphagia [Recovered/Resolved]
  - Wrong technique in drug usage process [Unknown]

NARRATIVE: CASE EVENT DATE: 20140913
